FAERS Safety Report 9408667 (Version 1)
Quarter: 2013Q3

REPORT INFORMATION
  Report Type: Spontaneous
  Country: US (occurrence: None)
  Receive Date: 20130716
  Receipt Date: 20130716
  Transmission Date: 20140515
  Serious: Yes (Other)
  Sender: FDA-Public Use
  Company Number: HA13-217-AE

PATIENT
  Sex: 0

DRUGS (1)
  1. NAPROXEN [Suspect]
     Route: 048

REACTIONS (1)
  - Renal failure chronic [None]
